FAERS Safety Report 9433880 (Version 2)
Quarter: 2013Q4

REPORT INFORMATION
  Report Type: Report from Study
  Country: DE (occurrence: DE)
  Receive Date: 20130801
  Receipt Date: 20131128
  Transmission Date: 20140711
  Serious: Yes (Hospitalization)
  Sender: FDA-Public Use
  Company Number: DE-ROCHE-1255458

PATIENT
  Age: 52 Year
  Sex: Female
  Weight: 51 kg

DRUGS (4)
  1. BEVACIZUMAB [Suspect]
     Indication: OVARIAN CANCER
     Dosage: LAST DOSE PRIOR TO SAE : 16/MAY/2013
     Route: 042
     Dates: start: 20130314, end: 20130731
  2. CARBOPLATIN [Suspect]
     Indication: OVARIAN CANCER
     Dosage: LAST DOSE PRIOR TO SAE : 11/JUL/2013?AUC 5
     Route: 042
     Dates: start: 20130314, end: 20130731
  3. PACLITAXEL [Suspect]
     Indication: OVARIAN CANCER
     Dosage: LAST DOSE PRIOR TO SAE : 11/JUL/2013
     Route: 042
     Dates: start: 20130314, end: 20130731
  4. CLEXANE [Concomitant]
     Route: 058
     Dates: start: 20130531

REACTIONS (1)
  - Pyrexia [Recovered/Resolved]
